FAERS Safety Report 15405161 (Version 1)
Quarter: 2018Q3

REPORT INFORMATION
  Report Type: Spontaneous
  Country: IN (occurrence: IN)
  Receive Date: 20180920
  Receipt Date: 20180920
  Transmission Date: 20181010
  Serious: Yes (Other)
  Sender: FDA-Public Use
  Company Number: IN-LUPIN LIMITED-2018-05217

PATIENT

DRUGS (2)
  1. MISOPROSTOL. [Suspect]
     Active Substance: MISOPROSTOL
     Indication: INDUCED LABOUR
     Dosage: 25 ?G, SINGLE
     Route: 064
  2. OXYTOCIN. [Suspect]
     Active Substance: OXYTOCIN
     Indication: LABOUR INDUCTION
     Dosage: UNK
     Route: 064

REACTIONS (2)
  - Bradycardia foetal [Unknown]
  - Foetal exposure during pregnancy [Unknown]
